FAERS Safety Report 5809936-8 (Version None)
Quarter: 2008Q3

REPORT INFORMATION
  Report Type: 
  Country: None (occurrence: None)
  Receive Date: 20080715
  Receipt Date: 20080704
  Transmission Date: 20090109
  Serious: Yes (Hospitalization)
  Sender: FDA-Public Use
  Company Number: NL-JNJFOC-20080701453

PATIENT
  Sex: Male
  Weight: 103.5 kg

DRUGS (5)
  1. INFLIXIMAB, RECOMBINANT [Suspect]
     Indication: RHEUMATOID ARTHRITIS
     Route: 042
  2. AZATHIOPRINE [Suspect]
     Indication: DRUG USE FOR UNKNOWN INDICATION
  3. INDOCIN [Concomitant]
     Indication: DRUG USE FOR UNKNOWN INDICATION
  4. ATENOLOL [Concomitant]
     Indication: BLOOD PRESSURE INCREASED
  5. OMEPRAZOLE [Concomitant]
     Indication: GASTROINTESTINAL DISORDER THERAPY

REACTIONS (2)
  - OSTEOARTHRITIS [None]
  - PYREXIA [None]
